FAERS Safety Report 16158467 (Version 1)
Quarter: 2019Q2

REPORT INFORMATION
  Report Type: Spontaneous
  Country: US (occurrence: US)
  Receive Date: 20190403
  Receipt Date: 20190403
  Transmission Date: 20190711
  Serious: Yes (Death)
  Sender: FDA-Public Use
  Company Number: None

PATIENT
  Age: 61 Year
  Sex: Female

DRUGS (13)
  1. CAPECITABINE. [Suspect]
     Active Substance: CAPECITABINE
     Indication: NEOPLASM MALIGNANT
     Route: 048
  2. FENTANYL. [Concomitant]
     Active Substance: FENTANYL
     Dates: start: 20190320
  3. BANOPHEN 25MG [Concomitant]
     Dates: start: 20190314
  4. BISACODYL. [Concomitant]
     Active Substance: BISACODYL
     Dates: start: 20190313
  5. ZOLPIDEM [Concomitant]
     Active Substance: ZOLPIDEM\ZOLPIDEM TARTRATE
     Dates: start: 20190311
  6. NYSTATIN SUSP. [Concomitant]
     Dates: start: 20190319
  7. ACEPHEN [Concomitant]
     Active Substance: ACETAMINOPHEN
     Dates: start: 20190312
  8. MEGESTROL AC [Concomitant]
     Dates: start: 20190312
  9. POLYETH GLYC POW. [Concomitant]
     Dates: start: 20190311
  10. HYDROC/APAP 5-325 [Concomitant]
     Dates: start: 20190219
  11. LORAZEPAM. [Concomitant]
     Active Substance: LORAZEPAM
     Dates: start: 20190312
  12. HYOSCYAMINE 0.125MG [Concomitant]
     Active Substance: HYOSCYAMINE
     Dates: start: 20190312
  13. MORPHINE [Concomitant]
     Active Substance: MORPHINE
     Dates: start: 20190312

REACTIONS (1)
  - Death [None]

NARRATIVE: CASE EVENT DATE: 20190402
